FAERS Safety Report 11906197 (Version 1)
Quarter: 2016Q1

REPORT INFORMATION
  Report Type: Spontaneous
  Country: FR (occurrence: FR)
  Receive Date: 20160111
  Receipt Date: 20160111
  Transmission Date: 20160526
  Serious: Yes (Hospitalization)
  Sender: FDA-Public Use
  Company Number: FR-ASTRAZENECA-2016SE01428

PATIENT
  Age: 54 Year
  Sex: Female

DRUGS (5)
  1. INEXIUM [Suspect]
     Active Substance: ESOMEPRAZOLE
     Route: 048
  2. AROMASINE [Concomitant]
     Active Substance: EXEMESTANE
     Route: 048
  3. ZELITREX [Concomitant]
     Active Substance: VALACYCLOVIR HYDROCHLORIDE
     Route: 048
  4. IRBESARTAN. [Suspect]
     Active Substance: IRBESARTAN
     Indication: HYPERTENSION
     Route: 048
     Dates: start: 201507, end: 20150728
  5. SOLUPRED [Concomitant]
     Active Substance: PREDNISOLONE

REACTIONS (6)
  - Pruritus generalised [Recovered/Resolved]
  - Rash erythematous [Recovered/Resolved]
  - Essential hypertension [Unknown]
  - Facial paralysis [Unknown]
  - Skin toxicity [Unknown]
  - Neurodermatitis [Unknown]

NARRATIVE: CASE EVENT DATE: 201505
